FAERS Safety Report 8496319-8 (Version None)
Quarter: 2012Q3

REPORT INFORMATION
  Report Type: 
  Country: None (occurrence: None)
  Receive Date: 20120709
  Receipt Date: 20120703
  Transmission Date: 20120928
  Serious: No
  Sender: FDA-Public Use
  Company Number: US-PFIZER INC-2012137049

PATIENT
  Sex: Female
  Weight: 88.435 kg

DRUGS (2)
  1. LYRICA [Suspect]
     Indication: FIBROMYALGIA
     Dosage: 50 MG, 2X/DAY (1 PO BID 1 DOSE)
     Route: 048
     Dates: start: 20120601, end: 20120602
  2. LYRICA [Suspect]
     Dosage: 50 MG, 2X/DAY
     Route: 048
     Dates: start: 20120602, end: 20120603

REACTIONS (4)
  - SOMNOLENCE [None]
  - HYPOAESTHESIA [None]
  - LETHARGY [None]
  - ASTHENIA [None]
